FAERS Safety Report 25728502 (Version 2)
Quarter: 2025Q3

REPORT INFORMATION
  Report Type: Spontaneous
  Country: JP (occurrence: JP)
  Receive Date: 20250826
  Receipt Date: 20250903
  Transmission Date: 20251021
  Serious: Yes (Death, Other)
  Sender: APELLIS PHARMACEUTICALS
  Company Number: JP-BIOVITRUM-2025-JP-011476

PATIENT

DRUGS (1)
  1. EMPAVELI [Suspect]
     Active Substance: PEGCETACOPLAN
     Indication: Paroxysmal nocturnal haemoglobinuria
     Dosage: TWICE PER WEEK
     Route: 058
     Dates: start: 20231101, end: 20250814

REACTIONS (8)
  - Death [Fatal]
  - Cardiovascular disorder [Unknown]
  - Condition aggravated [Unknown]
  - Cardiac failure chronic [Unknown]
  - Hypertension [Unknown]
  - Diabetes mellitus [Unknown]
  - Chronic kidney disease [Unknown]
  - Cervix carcinoma [Unknown]

NARRATIVE: CASE EVENT DATE: 20250816
